FAERS Safety Report 16182892 (Version 1)
Quarter: 2019Q2

REPORT INFORMATION
  Report Type: Spontaneous
  Country: FR (occurrence: FR)
  Receive Date: 20190411
  Receipt Date: 20190411
  Transmission Date: 20190711
  Serious: Yes (Hospitalization)
  Sender: FDA-Public Use
  Company Number: FR-SUN PHARMACEUTICAL INDUSTRIES LTD-2019RR-204857

PATIENT
  Age: 65 Year
  Sex: Female

DRUGS (5)
  1. AROMASINE 25 MG, COMPRIME ENROBE [Suspect]
     Active Substance: EXEMESTANE
     Indication: NEOPLASM MALIGNANT
     Dosage: 1 DOSAGE FORM, UNK
     Route: 048
     Dates: start: 201808
  2. PACLITAXEL. [Suspect]
     Active Substance: PACLITAXEL
     Indication: NEOPLASM MALIGNANT
     Dosage: 80 MILLIGRAM/SQ. METER, UNK
     Route: 042
     Dates: start: 20170717, end: 20171106
  3. HERCEPTIN [Suspect]
     Active Substance: TRASTUZUMAB
     Indication: NEOPLASM MALIGNANT
     Dosage: 8 MILLIGRAM/KILOGRAM, UNK
     Route: 042
     Dates: start: 20170717, end: 20180921
  4. ANASTROZOLE. [Suspect]
     Active Substance: ANASTROZOLE
     Indication: NEOPLASM MALIGNANT
     Dosage: 1 DOSAGE FORM, UNK
     Route: 048
     Dates: start: 20180119, end: 20180808
  5. PERJETA [Suspect]
     Active Substance: PERTUZUMAB
     Indication: NEOPLASM MALIGNANT
     Dosage: 840 MILLIGRAM, UNK
     Route: 042
     Dates: start: 20170717, end: 20170921

REACTIONS (1)
  - Endocarditis [Recovered/Resolved with Sequelae]

NARRATIVE: CASE EVENT DATE: 20180923
